FAERS Safety Report 20851216 (Version 1)
Quarter: 2022Q2

REPORT INFORMATION
  Report Type: Spontaneous
  Country: DE (occurrence: DE)
  Receive Date: 20220519
  Receipt Date: 20220519
  Transmission Date: 20220721
  Serious: Yes (Hospitalization, Other)
  Sender: FDA-Public Use
  Company Number: None

PATIENT
  Age: 42 Year
  Sex: Female
  Weight: 62 kg

DRUGS (2)
  1. ISENTRESS [Suspect]
     Active Substance: RALTEGRAVIR POTASSIUM
     Indication: HIV infection
     Dosage: 1200 MG (TWO DOSAGE FORMS), EVERY MORNING (REPORTED AS 2-0-0-0)
     Route: 048
     Dates: start: 20210802, end: 20220414
  2. TRUVADA [Suspect]
     Active Substance: EMTRICITABINE\TENOFOVIR DISOPROXIL FUMARATE
     Indication: HIV infection
     Dosage: 200/245MG (1 DOSAGE FORM), EVERY MORNING (REPORTED AS 1-0-0-0)
     Route: 048
     Dates: start: 202108, end: 20220414

REACTIONS (15)
  - Uterine leiomyoma [Recovered/Resolved]
  - Gamma-glutamyltransferase increased [Recovering/Resolving]
  - Aspartate aminotransferase increased [Recovering/Resolving]
  - Alanine aminotransferase increased [Recovering/Resolving]
  - Rhabdomyolysis [Recovering/Resolving]
  - Liver function test increased [Recovering/Resolving]
  - Blood lactate dehydrogenase increased [Recovering/Resolving]
  - Myoglobin blood increased [Recovering/Resolving]
  - Blood creatine phosphokinase increased [Recovering/Resolving]
  - Toxicity to various agents [Recovered/Resolved]
  - Sinus tachycardia [Unknown]
  - Blood pressure abnormal [Unknown]
  - Hepatitis A [Unknown]
  - Blood glucose increased [Unknown]
  - Myalgia [Unknown]

NARRATIVE: CASE EVENT DATE: 20220401
